FAERS Safety Report 8890022 (Version 1)
Quarter: 2012Q4

REPORT INFORMATION
  Report Type: Spontaneous
  Country: US (occurrence: None)
  Receive Date: 20121107
  Receipt Date: 20121107
  Transmission Date: 20130627
  Serious: No
  Sender: FDA-Public Use
  Company Number: None

PATIENT

DRUGS (2)
  1. ISOVUE [Suspect]
  2. METHYLPREDNISOLONE [Suspect]

REACTIONS (2)
  - Meningitis viral [None]
  - Cerebrospinal fluid leakage [None]
